FAERS Safety Report 22347177 (Version 1)
Quarter: 2023Q2

REPORT INFORMATION
  Report Type: Spontaneous
  Country: US (occurrence: US)
  Receive Date: 20230520
  Receipt Date: 20230520
  Transmission Date: 20230721
  Serious: Yes (Hospitalization)
  Sender: FDA-Public Use
  Company Number: US-LUOXINA-LUX-2023-US-LIT-00023

PATIENT
  Age: 18 Year
  Sex: Female

DRUGS (17)
  1. IPRATROPIUM BROMIDE [Suspect]
     Active Substance: IPRATROPIUM BROMIDE\IPRATROPIUM BROMIDE ANHYDROUS
     Indication: COVID-19
  2. CISATRACURIUM [Suspect]
     Active Substance: CISATRACURIUM
     Indication: COVID-19
  3. DEXAMETHASONE [Suspect]
     Active Substance: DEXAMETHASONE
     Indication: COVID-19
  4. DEXMEDETOMIDINE [Suspect]
     Active Substance: DEXMEDETOMIDINE
     Indication: COVID-19
  5. GABAPENTIN [Suspect]
     Active Substance: GABAPENTIN
     Indication: COVID-19
  6. GABAPENTIN [Suspect]
     Active Substance: GABAPENTIN
  7. ROCURONIUM BROMIDE [Suspect]
     Active Substance: ROCURONIUM BROMIDE
     Indication: COVID-19
  8. TRAZODONE [Suspect]
     Active Substance: TRAZODONE HYDROCHLORIDE
     Indication: COVID-19
  9. TRAZODONE [Suspect]
     Active Substance: TRAZODONE HYDROCHLORIDE
     Indication: Bacteraemia
  10. ANAKINRA [Suspect]
     Active Substance: ANAKINRA
     Indication: COVID-19
  11. ANAKINRA [Suspect]
     Active Substance: ANAKINRA
  12. LIDOCAINE [Suspect]
     Active Substance: LIDOCAINE
     Indication: COVID-19
  13. BENZODIAZEPINE [Suspect]
     Active Substance: BENZODIAZEPINE
     Indication: COVID-19
  14. REMDESIVIR [Suspect]
     Active Substance: REMDESIVIR
     Indication: COVID-19
  15. REMDESIVIR [Suspect]
     Active Substance: REMDESIVIR
     Dosage: 100 MILLIGRAM( 100MG FOR 4 DAYS)
  16. DEXTROMETHORPHAN [Suspect]
     Active Substance: DEXTROMETHORPHAN
     Indication: COVID-19
  17. PROPOFOL [Suspect]
     Active Substance: PROPOFOL
     Indication: Product used for unknown indication
     Dosage: ( 90 MCG/KG/MIN)

REACTIONS (2)
  - Drug ineffective [Unknown]
  - Off label use [Unknown]
